FAERS Safety Report 7405295-8 (Version None)
Quarter: 2011Q2

REPORT INFORMATION
  Report Type: 
  Country: None (occurrence: None)
  Receive Date: 20110411
  Receipt Date: 20110328
  Transmission Date: 20111010
  Serious: No
  Sender: FDA-Public Use
  Company Number: PHHY2011US25591

PATIENT
  Sex: Female

DRUGS (10)
  1. PRILOSEC [Concomitant]
  2. DILTIAZEM [Concomitant]
  3. EVISTA [Concomitant]
  4. RYTHMOL [Concomitant]
  5. CELEBREX [Concomitant]
  6. TASIGNA [Suspect]
     Indication: CHRONIC MYELOID LEUKAEMIA
     Dosage: 400 MG, Q12H
     Route: 048
     Dates: start: 20090301
  7. HYDROCHLOROTHIAZIDE [Concomitant]
  8. COUMADIN [Concomitant]
  9. PROCHLORPERAZINE TAB [Concomitant]
  10. GLEEVEC [Concomitant]

REACTIONS (7)
  - FLUID RETENTION [None]
  - ALOPECIA [None]
  - WEIGHT INCREASED [None]
  - DRY SKIN [None]
  - DYSPNOEA [None]
  - FLATULENCE [None]
  - FATIGUE [None]
